FAERS Safety Report 18558508 (Version 1)
Quarter: 2020Q4

REPORT INFORMATION
  Report Type: Spontaneous
  Country: US (occurrence: US)
  Receive Date: 20201125
  Receipt Date: 20201125
  Transmission Date: 20210114
  Serious: Yes (Hospitalization)
  Sender: FDA-Public Use
  Company Number: None

PATIENT
  Age: 69 Year
  Sex: Female

DRUGS (10)
  1. MICROLET [Concomitant]
  2. BD PEN NEEDL [Concomitant]
  3. NOVOLOG [Concomitant]
     Active Substance: INSULIN ASPART
  4. PIQRAY [Suspect]
     Active Substance: ALPELISIB
     Route: 048
  5. ATORVASTATIN [Concomitant]
     Active Substance: ATORVASTATIN
  6. HYDROCHLOROT [Concomitant]
     Active Substance: HYDROCHLOROTHIAZIDE
  7. VIRTUSSIN [Concomitant]
  8. CARVEDILOL. [Concomitant]
     Active Substance: CARVEDILOL
  9. LOSARTAN. [Concomitant]
     Active Substance: LOSARTAN
  10. CONTOUR [Concomitant]

REACTIONS (2)
  - Coma [None]
  - Hyperglycaemia [None]

NARRATIVE: CASE EVENT DATE: 20201124
